FAERS Safety Report 26208040 (Version 1)
Quarter: 2025Q4

REPORT INFORMATION
  Report Type: Spontaneous
  Country: US (occurrence: None)
  Receive Date: 20251225
  Receipt Date: 20251225
  Transmission Date: 20260117
  Serious: Yes (Hospitalization)
  Sender: FDA-CTU
  Company Number: None

PATIENT
  Age: 56 Year
  Sex: Female
  Weight: 82.2 kg

DRUGS (13)
  1. DOXORUBICIN HYDROCHLORIDE [Suspect]
     Active Substance: DOXORUBICIN HYDROCHLORIDE
     Dates: end: 20251124
  2. ALOXI [Concomitant]
     Active Substance: PALONOSETRON HYDROCHLORIDE
  3. CINVANTI [Concomitant]
     Active Substance: APREPITANT
  4. CLARITIN [Concomitant]
     Active Substance: LORATADINE
  5. COMPAZINE [Concomitant]
     Active Substance: PROCHLORPERAZINE MALEATE
  6. DECADRON [Concomitant]
     Active Substance: DEXAMETHASONE
  7. FULPHILA [Concomitant]
     Active Substance: PEGFILGRASTIM-JMDB
  8. MAGNESIUM SULFATE [Concomitant]
     Active Substance: MAGNESIUM SULFATE
  9. POTASSIUM CHLORIDE [Concomitant]
     Active Substance: POTASSIUM CHLORIDE
  10. SENOKOT [Concomitant]
     Active Substance: SENNOSIDES
  11. SODIUM CHLORIDE [Concomitant]
     Active Substance: SODIUM CHLORIDE
  12. ZOFRAN [Concomitant]
     Active Substance: ONDANSETRON HYDROCHLORIDE
  13. ZYPREXA [Concomitant]
     Active Substance: OLANZAPINE

REACTIONS (14)
  - Dyspnoea [None]
  - Peripheral swelling [None]
  - Mass [None]
  - Pleural effusion [None]
  - Pneumothorax [None]
  - Pyrexia [None]
  - Hypoalbuminaemia [None]
  - Oedema peripheral [None]
  - Hypertension [None]
  - Hyponatraemia [None]
  - Abdominal discomfort [None]
  - Nausea [None]
  - Disease progression [None]
  - Sarcoma [None]

NARRATIVE: CASE EVENT DATE: 20251212
